FAERS Safety Report 9613693 (Version 1)
Quarter: 2013Q4

REPORT INFORMATION
  Report Type: Spontaneous
  Country: DE (occurrence: DE)
  Receive Date: 20131010
  Receipt Date: 20131010
  Transmission Date: 20140711
  Serious: Yes (Death, Other)
  Sender: FDA-Public Use
  Company Number: DE-BAXTER-2013BAX039114

PATIENT
  Age: 72 Year
  Sex: Male

DRUGS (2)
  1. TISSUCOL [Suspect]
     Indication: CARDIAC TAMPONADE
  2. TISSUCOL [Suspect]
     Indication: OFF LABEL USE

REACTIONS (2)
  - Cardiogenic shock [Not Recovered/Not Resolved]
  - Cardiac failure [Fatal]
